FAERS Safety Report 8163362-8 (Version None)
Quarter: 2012Q1

REPORT INFORMATION
  Report Type: 
  Country: None (occurrence: None)
  Receive Date: 20120224
  Receipt Date: 20120222
  Transmission Date: 20120608
  Serious: Yes (Hospitalization)
  Sender: FDA-Public Use
  Company Number: US-GILEAD-2012-0051294

PATIENT
  Age: 83 Year
  Sex: Female

DRUGS (2)
  1. ZAROXOLYN [Concomitant]
  2. LETAIRIS [Suspect]
     Indication: PRODUCT USED FOR UNKNOWN INDICATION
     Dosage: 10 MG, UNK
     Route: 048
     Dates: start: 20090506

REACTIONS (6)
  - FATIGUE [None]
  - DYSPNOEA [None]
  - ASTHENIA [None]
  - BLOOD POTASSIUM DECREASED [None]
  - PNEUMONIA [None]
  - OEDEMA [None]
